FAERS Safety Report 22254896 (Version 2)
Quarter: 2023Q2

REPORT INFORMATION
  Report Type: Report from Study
  Country: MX (occurrence: MX)
  Receive Date: 20230426
  Receipt Date: 20230608
  Transmission Date: 20230721
  Serious: Yes (Other)
  Sender: FDA-Public Use
  Company Number: MX-002147023-NVSC2023MX092133

PATIENT
  Age: 6 Year
  Sex: Female
  Weight: 20 kg

DRUGS (2)
  1. OMNITROPE [Suspect]
     Active Substance: SOMATROPIN
     Indication: Short stature
     Dosage: 0.75 MG, QD, (10MG/1.5ML)
     Route: 058
     Dates: start: 20211026
  2. OMNITROPE [Suspect]
     Active Substance: SOMATROPIN
     Indication: Multiple sclerosis

REACTIONS (9)
  - Bronchial dysplasia [Unknown]
  - COVID-19 [Recovered/Resolved]
  - COVID-19 [Recovered/Resolved]
  - COVID-19 [Recovered/Resolved]
  - COVID-19 [Unknown]
  - Lung disorder [Unknown]
  - Influenza [Unknown]
  - Drug administered in wrong device [Not Recovered/Not Resolved]
  - Product use in unapproved indication [Unknown]

NARRATIVE: CASE EVENT DATE: 20211026
